FAERS Safety Report 10226969 (Version 1)
Quarter: 2014Q2

REPORT INFORMATION
  Report Type: Spontaneous
  Country: US (occurrence: US)
  Receive Date: 20140610
  Receipt Date: 20140610
  Transmission Date: 20141212
  Serious: No
  Sender: FDA-Public Use
  Company Number: US-009507513-1406USA002970

PATIENT
  Sex: Female

DRUGS (1)
  1. NEXPLANON [Suspect]
     Indication: CONTRACEPTION
     Dosage: UNK, FREQUENCY 1 ROD
     Route: 059

REACTIONS (3)
  - Ovarian cyst [Unknown]
  - Abdominal pain [Unknown]
  - Drug ineffective [Unknown]
